FAERS Safety Report 10909081 (Version 1)
Quarter: 2015Q1

REPORT INFORMATION
  Report Type: Spontaneous
  Country: US (occurrence: US)
  Receive Date: 20150312
  Receipt Date: 20150312
  Transmission Date: 20150721
  Serious: No
  Sender: FDA-Public Use
  Company Number: US-SA-2014SA028402

PATIENT
  Age: 66 Year
  Sex: Male

DRUGS (1)
  1. NASACORT ALLERGY 24HR [Suspect]
     Active Substance: TRIAMCINOLONE ACETONIDE
     Route: 065
     Dates: start: 20140228

REACTIONS (6)
  - Drug dose omission [Unknown]
  - Dizziness [Not Recovered/Not Resolved]
  - Nasal congestion [Unknown]
  - Condition aggravated [Unknown]
  - Rebound effect [Unknown]
  - Head discomfort [Not Recovered/Not Resolved]
